FAERS Safety Report 5656975-6 (Version None)
Quarter: 2008Q1

REPORT INFORMATION
  Report Type: 
  Country: None (occurrence: None)
  Receive Date: 20080310
  Receipt Date: 20080303
  Transmission Date: 20080703
  Serious: Yes (Hospitalization, Disabling)
  Sender: FDA-Public Use
  Company Number: B0508566A

PATIENT
  Age: 63 Year
  Sex: Female
  Weight: 42 kg

DRUGS (3)
  1. AUGMENTIN '125' [Suspect]
     Indication: SINUSITIS
     Dosage: 12G THREE TIMES PER DAY
     Route: 042
     Dates: start: 20070908, end: 20070911
  2. AUGMENTIN '125' [Suspect]
     Indication: SINUSITIS
     Dosage: 2TAB TWICE PER DAY
     Route: 048
     Dates: start: 20070911, end: 20070918
  3. PREXUM [Concomitant]
     Indication: HYPERTENSION
     Dosage: 4MG PER DAY
     Dates: start: 20070908, end: 20071214

REACTIONS (5)
  - COLITIS [None]
  - DEHYDRATION [None]
  - DIARRHOEA [None]
  - NAUSEA [None]
  - WEIGHT DECREASED [None]
